FAERS Safety Report 15868119 (Version 1)
Quarter: 2019Q1

REPORT INFORMATION
  Report Type: Spontaneous
  Country: US (occurrence: US)
  Receive Date: 20190103
  Receipt Date: 20190103
  Transmission Date: 20190417
  Serious: No
  Sender: FDA-Public Use
  Company Number: None

PATIENT
  Age: 86 Year
  Sex: Female
  Weight: 56.25 kg

DRUGS (11)
  1. MULTI VITAMIN [Concomitant]
     Active Substance: VITAMINS
  2. SEROQUEL [Concomitant]
     Active Substance: QUETIAPINE FUMARATE
  3. ASPIRIN. [Concomitant]
     Active Substance: ASPIRIN
  4. TYLENOL [Concomitant]
     Active Substance: ACETAMINOPHEN
  5. CALCIUM W/VIT D [Concomitant]
  6. NITROGLYCERIN TRANSDERMAL DELIVERY SYSTEM [Suspect]
     Active Substance: NITROGLYCERIN
     Indication: CORONARY ARTERY DISEASE
     Dosage: ?          QUANTITY:02 MG MILLIGRAM(S);?
     Route: 061
     Dates: start: 20181008, end: 20181218
  7. LEVOTHYROXIN [Concomitant]
     Active Substance: LEVOTHYROXINE
  8. METOPROLOL. [Concomitant]
     Active Substance: METOPROLOL
  9. CLONAZEPAM. [Concomitant]
     Active Substance: CLONAZEPAM
  10. ROSUVASTATIN. [Concomitant]
     Active Substance: ROSUVASTATIN
  11. MUCINEX [Concomitant]
     Active Substance: GUAIFENESIN

REACTIONS (1)
  - Migraine [None]

NARRATIVE: CASE EVENT DATE: 20181218
